FAERS Safety Report 18686830 (Version 1)
Quarter: 2020Q4

REPORT INFORMATION
  Report Type: Spontaneous
  Country: CN (occurrence: CN)
  Receive Date: 20201231
  Receipt Date: 20201231
  Transmission Date: 20210114
  Serious: Yes (Life-Threatening)
  Sender: FDA-Public Use
  Company Number: CN-BAYER-2020-285974

PATIENT
  Age: 54 Year
  Sex: Female
  Weight: 52.5 kg

DRUGS (3)
  1. MONTELUKAST SODIUM. [Concomitant]
     Active Substance: MONTELUKAST SODIUM
  2. AVELOX [Suspect]
     Active Substance: MOXIFLOXACIN HYDROCHLORIDE
     Indication: BRONCHITIS
     Dosage: 1 DF, QD
     Route: 048
     Dates: start: 20201214
  3. KE ZHI [Concomitant]

REACTIONS (7)
  - Somnolence [None]
  - Vomiting [Recovering/Resolving]
  - Feeling abnormal [None]
  - Cold sweat [Recovering/Resolving]
  - Tremor [Recovering/Resolving]
  - Asthenia [Recovering/Resolving]
  - Pyrexia [Recovering/Resolving]

NARRATIVE: CASE EVENT DATE: 20201214
